FAERS Safety Report 13487068 (Version 1)
Quarter: 2017Q2

REPORT INFORMATION
  Report Type: Report from Study
  Country: CA (occurrence: CA)
  Receive Date: 20170426
  Receipt Date: 20170426
  Transmission Date: 20170830
  Serious: Yes (Hospitalization, Other)
  Sender: FDA-Public Use
  Company Number: PHHY2017CA059888

PATIENT
  Sex: Female

DRUGS (2)
  1. EXJADE [Suspect]
     Active Substance: DEFERASIROX
     Indication: MYELODYSPLASTIC SYNDROME UNCLASSIFIABLE
     Dosage: 500 MG, QD
     Route: 048
  2. EXJADE [Suspect]
     Active Substance: DEFERASIROX
     Dosage: 875 MG, QD
     Route: 048
     Dates: start: 201512

REACTIONS (21)
  - Reticulocytosis [Unknown]
  - Blood lactate dehydrogenase increased [Unknown]
  - Ventricular hypokinesia [Unknown]
  - Left ventricular hypertrophy [Unknown]
  - Autoimmune haemolytic anaemia [Unknown]
  - Coombs test positive [Unknown]
  - Pulmonary oedema [Unknown]
  - Breath sounds abnormal [Unknown]
  - Vasodilatation [Unknown]
  - Orthopnoea [Unknown]
  - Haptoglobin decreased [Unknown]
  - Bilirubin conjugated increased [Unknown]
  - Haemolysis [Unknown]
  - Pleural effusion [Unknown]
  - Diastolic dysfunction [Unknown]
  - Cardiac disorder [Unknown]
  - Dyspnoea [Unknown]
  - Oedema [Unknown]
  - Fatigue [Unknown]
  - Haemoglobin abnormal [Unknown]
  - Cardiac failure congestive [Unknown]
